FAERS Safety Report 4890511-7 (Version None)
Quarter: 2006Q1

REPORT INFORMATION
  Report Type: 
  Country: None (occurrence: None)
  Receive Date: 20060123
  Receipt Date: 20060118
  Transmission Date: 20060701
  Serious: Yes (Death, Hospitalization)
  Sender: FDA-Public Use
  Company Number: TPA2005A01654

PATIENT
  Age: 88 Year
  Sex: Male

DRUGS (9)
  1. ROZEREM [Suspect]
     Indication: INSOMNIA
     Dosage: 8 MG, 1 IN 1 D, PER ORAL
     Route: 048
     Dates: start: 20051212, end: 20051213
  2. COUMADIN [Concomitant]
  3. DIOVAN HCT (CO-DIOVAN) [Concomitant]
  4. MEPROBAN (MEPROBAMATE) [Concomitant]
  5. NITROGLYCERIN TRANSDERMAL (GLYCERYL TRINITRATE) [Concomitant]
  6. PILOCARPINE EYE DROPS 2% (PILOCARPINE NITRATE) [Concomitant]
  7. ATENOLOL [Concomitant]
  8. IMDUR [Concomitant]
  9. FLOMAX [Concomitant]

REACTIONS (2)
  - CHEST PAIN [None]
  - DIALYSIS [None]
